FAERS Safety Report 6750179-1 (Version None)
Quarter: 2010Q2

REPORT INFORMATION
  Report Type: 
  Country: None (occurrence: None)
  Receive Date: 20100601
  Receipt Date: 20100520
  Transmission Date: 20101027
  Serious: Yes (Other)
  Sender: FDA-Public Use
  Company Number: US-PFIZER INC-2010064475

PATIENT
  Sex: Female

DRUGS (1)
  1. LYRICA [Suspect]
     Indication: FIBROMYALGIA
     Dosage: UNK
     Dates: start: 20100501, end: 20100501

REACTIONS (3)
  - ARRHYTHMIA [None]
  - CHEST PAIN [None]
  - VENTRICULAR EXTRASYSTOLES [None]
